FAERS Safety Report 4390684-9 (Version None)
Quarter: 2004Q2

REPORT INFORMATION
  Report Type: 
  Country: None (occurrence: None)
  Receive Date: 20040630
  Receipt Date: 20040617
  Transmission Date: 20050107
  Serious: Yes (Hospitalization, Other)
  Sender: FDA-Public Use
  Company Number: 2004041530

PATIENT
  Age: 55 Year
  Sex: Female

DRUGS (6)
  1. GABAPENTIN [Suspect]
     Indication: ILL-DEFINED DISORDER
     Dosage: 900 MG (300 MG, 3 IN 1 D)
  2. MORPHINE SULFATE [Suspect]
     Indication: PAIN
     Dosage: 30 MG (30 MG, PRN) ORAL
     Route: 048
  3. ALPRAZOLAM [Suspect]
     Indication: ILL-DEFINED DISORDER
     Dosage: 0.5 MG (PRN)
  4. TRAZODONE HCL [Suspect]
     Indication: ILL-DEFINED DISORDER
     Dosage: 100 MG (NIGHTLY)
  5. FENTANYL [Suspect]
     Indication: PAIN
     Dosage: 125 MCG/H (EVERY 3 DAYS), TRANSDERMAL
     Route: 062
  6. FLUOXETINE [Suspect]
     Indication: ILL-DEFINED DISORDER
     Dosage: 80 MG (DAILY)

REACTIONS (19)
  - ABDOMINAL PAIN [None]
  - ABDOMINAL WALL ABSCESS [None]
  - ASTERIXIS [None]
  - BLOOD ALBUMIN DECREASED [None]
  - BLOOD POTASSIUM DECREASED [None]
  - COGNITIVE DISORDER [None]
  - CONFUSIONAL STATE [None]
  - CONSTIPATION [None]
  - DECREASED ACTIVITY [None]
  - DEHYDRATION [None]
  - DELUSION [None]
  - DISORIENTATION [None]
  - DISTURBANCE IN ATTENTION [None]
  - MENTAL IMPAIRMENT [None]
  - MYOCLONUS [None]
  - NAUSEA [None]
  - PAIN [None]
  - SEDATION [None]
  - THINKING ABNORMAL [None]
